FAERS Safety Report 5223133-9 (Version None)
Quarter: 2007Q1

REPORT INFORMATION
  Report Type: 
  Country: None (occurrence: None)
  Receive Date: 20061201
  Receipt Date: 20060907
  Transmission Date: 20070707
  Serious: No
  Sender: FDA-Public Use
  Company Number: 2005PV000799

PATIENT
  Age: 65 Year
  Sex: Female
  Weight: 93.8946 kg

DRUGS (7)
  1. BYETTA [Suspect]
     Indication: DIABETES MELLITUS NON-INSULIN-DEPENDENT
     Dosage: SEE IMAGE
     Route: 058
     Dates: start: 20050601, end: 20050101
  2. BYETTA [Suspect]
     Indication: DIABETES MELLITUS NON-INSULIN-DEPENDENT
     Dosage: SEE IMAGE
     Route: 058
     Dates: start: 20050801
  3. PRANDIN [Suspect]
     Dosage: 1 MG; TID; PO
     Route: 048
  4. AZAMACORT [Concomitant]
  5. ALBUTEROL [Concomitant]
  6. INTAL [Concomitant]
  7. PRANDIN [Concomitant]

REACTIONS (14)
  - ABDOMINAL DISTENSION [None]
  - BLOOD GLUCOSE INCREASED [None]
  - CONSTIPATION [None]
  - DECREASED APPETITE [None]
  - DEPRESSED MOOD [None]
  - ERUCTATION [None]
  - FEELING ABNORMAL [None]
  - NAUSEA [None]
  - POLLAKIURIA [None]
  - SINUS HEADACHE [None]
  - SOMNOLENCE [None]
  - THERAPEUTIC RESPONSE UNEXPECTED [None]
  - URINE OUTPUT DECREASED [None]
  - WEIGHT DECREASED [None]
